FAERS Safety Report 9595087 (Version 1)
Quarter: 2013Q4

REPORT INFORMATION
  Report Type: Spontaneous
  Country: US (occurrence: US)
  Receive Date: 20131004
  Receipt Date: 20131004
  Transmission Date: 20140711
  Serious: Yes (Hospitalization)
  Sender: FDA-Public Use
  Company Number: US-JNJFOC-20130916414

PATIENT
  Age: 67 Year
  Sex: Female
  Weight: 58.5 kg

DRUGS (22)
  1. DOXORUBICIN HYDROCHLORIDE [Suspect]
     Indication: OVARIAN CANCER
     Dosage: 79 MG, WEEKS 1 AND 3
     Route: 042
     Dates: start: 20130715, end: 20130814
  2. DOXORUBICIN HYDROCHLORIDE [Suspect]
     Indication: OVARIAN CANCER
     Dosage: 76 MG, WEEKS 1 AND 3
     Route: 042
     Dates: end: 20130816
  3. EC145 [Suspect]
     Indication: OVARIAN CANCER
     Dosage: 2.5 MG, WEEKS 1 AND 3
     Route: 042
     Dates: end: 20130816
  4. EC145 [Suspect]
     Indication: OVARIAN CANCER
     Dosage: 2.5 MG, WEEKS 1 AND 3
     Route: 042
     Dates: start: 20130715, end: 20130814
  5. PLACEBO [Suspect]
     Indication: OVARIAN CANCER
     Dosage: 2.5 MG, WEEKS 1 AND 3
     Route: 042
     Dates: start: 20130715, end: 20130814
  6. PLACEBO [Suspect]
     Indication: OVARIAN CANCER
     Dosage: 2.5 MG WEEKS 1 AND 3
     Route: 042
     Dates: end: 20130816
  7. FOLIC ACID [Suspect]
     Indication: POSITRON EMISSION TOMOGRAM
     Route: 042
     Dates: start: 20130702, end: 20130702
  8. EC20 [Suspect]
     Indication: POSITRON EMISSION TOMOGRAM
     Route: 042
     Dates: start: 20130702, end: 20130702
  9. GABAPENTIN [Concomitant]
     Indication: PERIPHERAL SENSORY NEUROPATHY
     Route: 065
     Dates: start: 20130701
  10. METOPROLOL [Concomitant]
     Indication: AORTIC STENOSIS
     Route: 065
     Dates: start: 20121003, end: 20130616
  11. COLACE [Concomitant]
     Indication: CONSTIPATION
     Route: 065
     Dates: start: 20130615
  12. DULCOLAX [Concomitant]
     Indication: CONSTIPATION
     Route: 065
     Dates: start: 20130719
  13. ZANTAC [Concomitant]
     Indication: DYSPEPSIA
     Route: 065
     Dates: start: 20130719
  14. TYLENOL MIGRAINE [Concomitant]
     Indication: ABDOMINAL PAIN
     Route: 065
     Dates: start: 20130719
  15. ATIVAN [Concomitant]
     Indication: ANXIETY
     Route: 065
     Dates: start: 20120904
  16. MEGESTROL [Concomitant]
     Route: 065
     Dates: start: 20121003
  17. NYSTATIN [Concomitant]
     Route: 065
     Dates: start: 20121003
  18. PROTONIX [Concomitant]
     Indication: GASTROOESOPHAGEAL REFLUX DISEASE
     Route: 065
     Dates: start: 20121003
  19. POLYETHYLENE GLYCOL [Concomitant]
     Indication: CONSTIPATION
     Route: 065
  20. RANITIDINE [Concomitant]
     Indication: DYSPEPSIA
     Route: 065
     Dates: start: 20130719
  21. CALCIUM CARBONATE [Concomitant]
     Indication: DYSPEPSIA
     Route: 065
  22. MAALOX [Concomitant]
     Indication: DYSPEPSIA
     Route: 065

REACTIONS (4)
  - Ascites [Recovered/Resolved]
  - Nausea [Recovered/Resolved]
  - Vomiting [Recovered/Resolved]
  - Abdominal pain [Recovered/Resolved]
